FAERS Safety Report 7417594-4 (Version None)
Quarter: 2011Q2

REPORT INFORMATION
  Report Type: 
  Country: None (occurrence: None)
  Receive Date: 20110415
  Receipt Date: 20110406
  Transmission Date: 20111010
  Serious: Yes (Other)
  Sender: FDA-Public Use
  Company Number: US-AMGEN-USASP2011018329

PATIENT
  Age: 75 Year
  Sex: Female

DRUGS (10)
  1. XANAX [Concomitant]
  2. CALCIUM [Concomitant]
  3. PROLIA [Suspect]
     Indication: OSTEOPOROSIS POSTMENOPAUSAL
     Dates: start: 20110323
  4. BENADRYL [Suspect]
     Dosage: 50 MG, UNK
  5. CYMBALTA [Concomitant]
  6. RANITIDINE [Concomitant]
     Dosage: UNK
  7. VITAMIN A [Concomitant]
  8. FISH OIL [Concomitant]
  9. METOPROLOL TARTRATE [Concomitant]
  10. VENASTAT                           /01329703/ [Concomitant]
     Dosage: UNK

REACTIONS (8)
  - PAIN IN JAW [None]
  - LIP SWELLING [None]
  - FIBROMYALGIA [None]
  - PRURITUS [None]
  - LIP DRY [None]
  - HEADACHE [None]
  - MYALGIA [None]
  - FEELING ABNORMAL [None]
